FAERS Safety Report 4720742-8 (Version None)
Quarter: 2005Q3

REPORT INFORMATION
  Report Type: 
  Country: None (occurrence: None)
  Receive Date: 20050719
  Receipt Date: 20050706
  Transmission Date: 20060218
  Serious: Yes (Other)
  Sender: FDA-Public Use
  Company Number: 2005099146

PATIENT
  Age: 48 Year
  Sex: Female
  Weight: 63.5036 kg

DRUGS (7)
  1. NEURONTIN [Suspect]
     Indication: ENDOMETRIOSIS
     Dosage: ORAL
     Route: 048
     Dates: end: 20050101
  2. NEURONTIN [Suspect]
     Indication: NEUROPATHIC PAIN
     Dosage: ORAL
     Route: 048
     Dates: end: 20050101
  3. ELAVIL [Suspect]
     Indication: ENDOMETRIOSIS
     Dosage: 10 MG (10 MG,1 IN 1 D),ORAL
     Route: 048
     Dates: start: 20050101
  4. ELAVIL [Suspect]
     Indication: NEUROPATHIC PAIN
     Dosage: 10 MG (10 MG,1 IN 1 D),ORAL
     Route: 048
     Dates: start: 20050101
  5. ADVIL [Concomitant]
  6. DICYCLOMINE           (DICYCLOVERINE) [Concomitant]
  7. AYGESTIN [Concomitant]

REACTIONS (3)
  - CONSTIPATION [None]
  - DIARRHOEA [None]
  - DRUG INEFFECTIVE [None]
